FAERS Safety Report 5776641-6 (Version None)
Quarter: 2008Q2

REPORT INFORMATION
  Report Type: 
  Country: None (occurrence: None)
  Receive Date: 20080618
  Receipt Date: 20080227
  Transmission Date: 20081010
  Serious: Yes (Disabling)
  Sender: FDA-Public Use
  Company Number: US-ASTRAZENECA-2008UW04061

PATIENT
  Age: 40 Year
  Sex: Male

DRUGS (4)
  1. SYMBICORT [Suspect]
     Dosage: 160/4.5 MCG 2 PUFFS
     Route: 055
  2. HYDROCHLOROTHIAZIDE [Concomitant]
  3. PROAIR HFA [Concomitant]
  4. ASPIRIN [Concomitant]

REACTIONS (3)
  - DIZZINESS [None]
  - HEADACHE [None]
  - VOMITING [None]
